FAERS Safety Report 5828646-4 (Version None)
Quarter: 2008Q3

REPORT INFORMATION
  Report Type: 
  Country: None (occurrence: None)
  Receive Date: 20080731
  Receipt Date: 20080721
  Transmission Date: 20090109
  Serious: Yes (Death, Hospitalization)
  Sender: FDA-Public Use
  Company Number: B0530033A

PATIENT
  Age: 78 Year
  Sex: Male

DRUGS (7)
  1. ARIXTRA [Suspect]
     Indication: PHLEBITIS
     Dosage: 2.5MG TWICE PER DAY
     Route: 058
     Dates: start: 20080601, end: 20080616
  2. REQUIP [Concomitant]
     Route: 065
  3. JOSIR [Concomitant]
     Route: 065
  4. ACETAMINOPHEN [Concomitant]
     Route: 065
  5. FUROSEMIDE [Concomitant]
     Route: 065
     Dates: start: 20080601
  6. ALDACTONE [Concomitant]
     Route: 065
     Dates: start: 20080601
  7. MODOPAR [Concomitant]

REACTIONS (8)
  - APHASIA [None]
  - BRAIN HERNIATION [None]
  - CEREBRAL HAEMATOMA [None]
  - CEREBROVASCULAR ACCIDENT [None]
  - CONFUSIONAL STATE [None]
  - DRUG PRESCRIBING ERROR [None]
  - GENERAL PHYSICAL HEALTH DETERIORATION [None]
  - HEMIPLEGIA [None]
